FAERS Safety Report 18493313 (Version 2)
Quarter: 2020Q4

REPORT INFORMATION
  Report Type: Report from Study
  Country: US (occurrence: US)
  Receive Date: 20201111
  Receipt Date: 20201124
  Transmission Date: 20210114
  Serious: Yes (Life-Threatening, Hospitalization)
  Sender: FDA-Public Use
  Company Number: US-TAKEDA-US202033284

PATIENT
  Age: 44 Year
  Sex: Male

DRUGS (16)
  1. ZOSYN [Concomitant]
     Active Substance: PIPERACILLIN SODIUM\TAZOBACTAM SODIUM
     Indication: PRODUCT USED FOR UNKNOWN INDICATION
  2. TEDUGLUTIDE [Suspect]
     Active Substance: TEDUGLUTIDE
     Dosage: 3 MILLIGRAM (DAILY DOSE 0.05 MG/KG), OTHER (TED DOSES PER WEEK 12)
     Route: 065
     Dates: start: 20190411
  3. VIVONEX T.E.N. [Concomitant]
     Indication: PRODUCT USED FOR UNKNOWN INDICATION
  4. TEDUGLUTIDE [Suspect]
     Active Substance: TEDUGLUTIDE
     Dosage: 1.5 MILLIGRAM (DAILY DOSE 0.05 MG/KG), OTHER (TED DOSES PER WEEK 7)
     Route: 065
     Dates: start: 20190221, end: 20190411
  5. TEDUGLUTIDE [Suspect]
     Active Substance: TEDUGLUTIDE
     Indication: SHORT-BOWEL SYNDROME
     Dosage: 3 MILLIGRAM (DAILY DOSE 0.05 MG/KG), OTHER (TED DOSES PER WEEK 7)
     Route: 065
     Dates: start: 20181120, end: 20190219
  6. TEDUGLUTIDE [Suspect]
     Active Substance: TEDUGLUTIDE
     Dosage: 1.5 MILLIGRAM (DAILY DOSE 0.05 MG/KG), OTHER (TED DOSES PER WEEK 7)
     Route: 065
     Dates: start: 20190221, end: 20190411
  7. TEDUGLUTIDE [Suspect]
     Active Substance: TEDUGLUTIDE
     Dosage: 1.5 MILLIGRAM (DAILY DOSE 0.05 MG/KG), OTHER (TED DOSES PER WEEK 7)
     Route: 065
     Dates: start: 20190221, end: 20190411
  8. TEDUGLUTIDE [Suspect]
     Active Substance: TEDUGLUTIDE
     Dosage: 3 MILLIGRAM (DAILY DOSE 0.05 MG/KG), OTHER (TED DOSES PER WEEK 12)
     Route: 065
     Dates: start: 20190411
  9. VITAMIN E [HERBAL OIL NOS] [Concomitant]
     Indication: HYPOVITAMINOSIS
     Dosage: 400 INTERNATIONAL UNIT
     Route: 048
     Dates: start: 20120627
  10. TEDUGLUTIDE [Suspect]
     Active Substance: TEDUGLUTIDE
     Indication: SHORT-BOWEL SYNDROME
     Dosage: 3 MILLIGRAM (DAILY DOSE 0.05 MG/KG), OTHER (TED DOSES PER WEEK 7)
     Route: 065
     Dates: start: 20181120, end: 20190219
  11. TEDUGLUTIDE [Suspect]
     Active Substance: TEDUGLUTIDE
     Dosage: 3 MILLIGRAM (DAILY DOSE 0.05 MG/KG), OTHER (TED DOSES PER WEEK 12)
     Route: 065
     Dates: start: 20190411
  12. VITAMIN A [RETINOL] [Concomitant]
     Active Substance: RETINOL
     Indication: HYPOVITAMINOSIS
     Dosage: 10000 INTERNATIONAL UNIT, QD
     Route: 048
     Dates: start: 20180627
  13. TEDUGLUTIDE [Suspect]
     Active Substance: TEDUGLUTIDE
     Indication: SHORT-BOWEL SYNDROME
     Dosage: 3 MILLIGRAM (DAILY DOSE 0.05 MG/KG), OTHER (TED DOSES PER WEEK 7)
     Route: 065
     Dates: start: 20181120, end: 20190219
  14. TEDUGLUTIDE [Suspect]
     Active Substance: TEDUGLUTIDE
     Dosage: 1.5 MILLIGRAM (DAILY DOSE 0.05 MG/KG), OTHER (TED DOSES PER WEEK 7)
     Route: 065
     Dates: start: 20190221, end: 20190411
  15. TEDUGLUTIDE [Suspect]
     Active Substance: TEDUGLUTIDE
     Dosage: 3 MILLIGRAM (DAILY DOSE 0.05 MG/KG), OTHER (TED DOSES PER WEEK 12)
     Route: 065
     Dates: start: 20190411
  16. TEDUGLUTIDE [Suspect]
     Active Substance: TEDUGLUTIDE
     Indication: SHORT-BOWEL SYNDROME
     Dosage: 3 MILLIGRAM (DAILY DOSE 0.05 MG/KG), OTHER (TED DOSES PER WEEK 7)
     Route: 065
     Dates: start: 20181120, end: 20190219

REACTIONS (3)
  - Cholecystitis acute [Not Recovered/Not Resolved]
  - COVID-19 [Recovered/Resolved]
  - Gallbladder rupture [Not Recovered/Not Resolved]

NARRATIVE: CASE EVENT DATE: 20200718
